FAERS Safety Report 5025849-6 (Version None)
Quarter: 2006Q2

REPORT INFORMATION
  Report Type: 
  Country: None (occurrence: None)
  Receive Date: 20060614
  Receipt Date: 20060607
  Transmission Date: 20061013
  Serious: Yes (Other)
  Sender: FDA-Public Use
  Company Number: US-SANOFI-SYNTHELABO-A03200603659

PATIENT
  Age: 18 Year
  Sex: Female

DRUGS (2)
  1. AMBIEN [Suspect]
     Indication: DRUG USE FOR UNKNOWN INDICATION
     Dosage: UNK
     Route: 048
     Dates: start: 20040801, end: 20040801
  2. ALCOHOL [Concomitant]
     Dosage: UNK
     Route: 048

REACTIONS (1)
  - SEXUAL ASSAULT VICTIM [None]
